APPROVED DRUG PRODUCT: GABAPENTIN
Active Ingredient: GABAPENTIN
Strength: 600MG
Dosage Form/Route: TABLET;ORAL
Application: A205101 | Product #001 | TE Code: AB1
Applicant: SCIEGEN PHARMACEUTICALS INC
Approved: Feb 4, 2016 | RLD: No | RS: No | Type: RX